FAERS Safety Report 20343703 (Version 1)
Quarter: 2022Q1

REPORT INFORMATION
  Report Type: Spontaneous
  Country: US (occurrence: US)
  Receive Date: 20220118
  Receipt Date: 20220118
  Transmission Date: 20220423
  Serious: No
  Sender: FDA-Public Use
  Company Number: US-CELGENE-USA-20220103224

PATIENT
  Age: 72 Year
  Sex: Female
  Weight: 73.548 kg

DRUGS (1)
  1. REVLIMID [Suspect]
     Active Substance: LENALIDOMIDE
     Indication: Plasma cell myeloma
     Dosage: 10 MILLIGRAM
     Route: 048
     Dates: start: 20211228

REACTIONS (5)
  - Rhinorrhoea [Unknown]
  - Infection [Unknown]
  - Cough [Unknown]
  - Oropharyngeal pain [Unknown]
  - Illness [Unknown]

NARRATIVE: CASE EVENT DATE: 20220110
